FAERS Safety Report 20086389 (Version 4)
Quarter: 2022Q3

REPORT INFORMATION
  Report Type: Report from Study
  Country: None (occurrence: US)
  Receive Date: 20211118
  Receipt Date: 20220909
  Transmission Date: 20221027
  Serious: Yes (Hospitalization, Other)
  Sender: FDA-Public Use
  Company Number: US-AKCEA THERAPEUTICS, INC.-2021IS001628

PATIENT
  Age: 69 Year
  Sex: Male

DRUGS (3)
  1. TEGSEDI [Suspect]
     Active Substance: INOTERSEN SODIUM
     Indication: Hereditary neuropathic amyloidosis
     Route: 058
     Dates: start: 20190629, end: 20220621
  2. DEVICE [Suspect]
     Active Substance: DEVICE
  3. TEGSEDI [Suspect]
     Active Substance: INOTERSEN SODIUM
     Route: 058
     Dates: start: 20190729

REACTIONS (15)
  - Platelet count decreased [Unknown]
  - Urine protein/creatinine ratio increased [Unknown]
  - Urine abnormality [Unknown]
  - Bacterial test positive [Unknown]
  - Crystal urine present [Unknown]
  - Urinary casts [Unknown]
  - Gastrointestinal haemorrhage [Unknown]
  - Acute kidney injury [Unknown]
  - Glomerular filtration rate decreased [Unknown]
  - Urine leukocyte esterase positive [Unknown]
  - Urine ketone body present [Unknown]
  - Protein urine present [Unknown]
  - Blood creatinine increased [Unknown]
  - Fungal test positive [Unknown]
  - White blood cells urine positive [Unknown]

NARRATIVE: CASE EVENT DATE: 20210810
